FAERS Safety Report 10774250 (Version 2)
Quarter: 2016Q1

REPORT INFORMATION
  Report Type: Spontaneous
  Country: US (occurrence: US)
  Receive Date: 20150209
  Receipt Date: 20160304
  Transmission Date: 20160525
  Serious: No
  Sender: FDA-Public Use
  Company Number: US-ACORDA-ACO_26924_2011

PATIENT
  Sex: Female

DRUGS (3)
  1. AMPYRA [Suspect]
     Active Substance: DALFAMPRIDINE
     Indication: GAIT DISTURBANCE
     Dosage: 10 MG, BID
     Route: 048
  2. AMPYRA [Suspect]
     Active Substance: DALFAMPRIDINE
     Indication: MULTIPLE SCLEROSIS
  3. TYSABRI [Concomitant]
     Active Substance: NATALIZUMAB
     Dosage: 300 MG, MONTHLY
     Route: 042
     Dates: start: 20090105

REACTIONS (14)
  - Walking aid user [Unknown]
  - Nausea [Unknown]
  - Headache [Unknown]
  - Abdominal pain upper [Unknown]
  - Dysphagia [Unknown]
  - Pruritus [Unknown]
  - Skin burning sensation [Unknown]
  - Dyspepsia [Unknown]
  - Asthenia [Unknown]
  - Dysgeusia [None]
  - Insomnia [Unknown]
  - Back pain [Unknown]
  - Drug ineffective [Unknown]
  - Balance disorder [Unknown]
